FAERS Safety Report 4300025-0 (Version None)
Quarter: 2004Q1

REPORT INFORMATION
  Report Type: 
  Country: None (occurrence: None)
  Receive Date: 20040219
  Receipt Date: 20040219
  Transmission Date: 20041129
  Serious: Yes (Hospitalization)
  Sender: FDA-Public Use
  Company Number: None

PATIENT
  Age: 55 Year
  Sex: Male

DRUGS (4)
  1. NAPROXEN [Suspect]
     Indication: PAIN
     Dosage: 1 PO BID
     Route: 048
  2. HYDROCHLOROTHIAZIDE [Concomitant]
  3. NIFEDIPINE [Concomitant]
  4. PHENYTOIN [Concomitant]

REACTIONS (5)
  - ABDOMINAL PAIN [None]
  - COLONIC POLYP [None]
  - DIVERTICULITIS [None]
  - RECTAL HAEMORRHAGE [None]
  - SYNCOPE [None]
